FAERS Safety Report 14484478 (Version 1)
Quarter: 2018Q1

REPORT INFORMATION
  Report Type: Spontaneous
  Country: US (occurrence: US)
  Receive Date: 20180202
  Receipt Date: 20180202
  Transmission Date: 20180509
  Serious: Yes (Other)
  Sender: FDA-Public Use
  Company Number: None

PATIENT

DRUGS (2)
  1. BUPIVICAINE [Suspect]
     Active Substance: BUPIVACAINE
  2. MORPHINE [Suspect]
     Active Substance: MORPHINE

REACTIONS (2)
  - Respiratory depression [None]
  - Respiratory rate decreased [None]
